FAERS Safety Report 8481445-X (Version None)
Quarter: 2012Q2

REPORT INFORMATION
  Report Type: 
  Country: None (occurrence: None)
  Receive Date: 20120626
  Receipt Date: 20120626
  Transmission Date: 20120825
  Serious: No
  Sender: FDA-Public Use
  Company Number: None

PATIENT
  Sex: Female

DRUGS (1)
  1. AFINITOR [Suspect]
     Dosage: 10MG DAILY PO
     Route: 048
     Dates: start: 20111229, end: 20120611

REACTIONS (2)
  - OEDEMA PERIPHERAL [None]
  - ERYTHEMA [None]
